FAERS Safety Report 11429484 (Version 1)
Quarter: 2015Q3

REPORT INFORMATION
  Report Type: Spontaneous
  Country: US (occurrence: US)
  Receive Date: 20150828
  Receipt Date: 20150828
  Transmission Date: 20151125
  Serious: No
  Sender: FDA-Public Use
  Company Number: US-ROCHE-1205894

PATIENT
  Sex: Female
  Weight: 83.08 kg

DRUGS (3)
  1. RIBAVIRIN. [Suspect]
     Active Substance: RIBAVIRIN
     Indication: HEPATITIS C
     Route: 048
     Dates: start: 20130221, end: 20130321
  2. TELAPREVIR [Suspect]
     Active Substance: TELAPREVIR
     Indication: HEPATITIS C
     Route: 048
     Dates: start: 20130221, end: 20130321
  3. PEGASYS [Suspect]
     Active Substance: PEGINTERFERON ALFA-2A
     Indication: HEPATITIS C
     Route: 058
     Dates: start: 20130221, end: 20130321

REACTIONS (7)
  - Skin disorder [Unknown]
  - Oral discomfort [Unknown]
  - Abdominal discomfort [Unknown]
  - Laboratory test abnormal [Unknown]
  - Mood swings [Unknown]
  - Anorectal discomfort [Unknown]
  - Diarrhoea [Unknown]
